FAERS Safety Report 4551897-6 (Version None)
Quarter: 2005Q1

REPORT INFORMATION
  Report Type: 
  Country: None (occurrence: None)
  Receive Date: 20050107
  Receipt Date: 20041214
  Transmission Date: 20050727
  Serious: Yes (Death, Other)
  Sender: FDA-Public Use
  Company Number: 104897ISR

PATIENT
  Age: 72 Year
  Sex: Female

DRUGS (3)
  1. GLATIRAMER ACETATE [Suspect]
     Indication: MULTIPLE SCLEROSIS
     Route: 058
     Dates: start: 20040101
  2. HEPARIN-FRACTION [Suspect]
  3. IMPLANON [Concomitant]

REACTIONS (3)
  - METASTASES TO BLADDER [None]
  - UTERINE CANCER [None]
  - VAGINAL HAEMORRHAGE [None]
